FAERS Safety Report 7448015 (Version 5)
Quarter: 2013Q3

REPORT INFORMATION
  Report Type: Spontaneous
  Country: US (occurrence: US)
  Receive Date: 20100630
  Receipt Date: 20130820
  Transmission Date: 20140515
  Serious: No
  Sender: FDA-Public Use
  Company Number: US-BIOGENIDEC-2010BI021473

PATIENT
  Age: 54 Year
  Sex: Female

DRUGS (4)
  1. TYSABRI [Suspect]
     Indication: MULTIPLE SCLEROSIS
     Route: 042
     Dates: start: 20090813, end: 20101230
  2. TYSABRI [Suspect]
     Indication: MULTIPLE SCLEROSIS
     Route: 042
     Dates: start: 20130808
  3. SINGULAIR [Concomitant]
     Indication: ASTHMA
  4. INHALER (NOS) [Concomitant]
     Indication: ASTHMA

REACTIONS (19)
  - Pain in extremity [Recovered/Resolved]
  - Hypoaesthesia [Not Recovered/Not Resolved]
  - Balance disorder [Not Recovered/Not Resolved]
  - Depression [Recovered/Resolved]
  - Abdominal pain upper [Recovered/Resolved]
  - Local swelling [Recovered/Resolved]
  - Asthma [Recovered/Resolved]
  - Cognitive disorder [Not Recovered/Not Resolved]
  - Back pain [Not Recovered/Not Resolved]
  - Stress [Not Recovered/Not Resolved]
  - Drug hypersensitivity [Recovered/Resolved]
  - Headache [Recovered/Resolved]
  - Fatigue [Recovered/Resolved]
  - Arthralgia [Recovered/Resolved]
  - Nasopharyngitis [Not Recovered/Not Resolved]
  - Sinusitis [Not Recovered/Not Resolved]
  - Cystitis [Not Recovered/Not Resolved]
  - Rash [Not Recovered/Not Resolved]
  - Pyrexia [Not Recovered/Not Resolved]
